FAERS Safety Report 14708532 (Version 1)
Quarter: 2018Q2

REPORT INFORMATION
  Report Type: Report from Study
  Country: DE (occurrence: DE)
  Receive Date: 20180403
  Receipt Date: 20180403
  Transmission Date: 20180711
  Serious: Yes (Hospitalization)
  Sender: FDA-Public Use
  Company Number: DE-GLAXOSMITHKLINE-DE2018051375

PATIENT
  Age: 51 Year
  Sex: Female

DRUGS (3)
  1. ACYCLOVIR. [Suspect]
     Active Substance: ACYCLOVIR
     Indication: PRODUCT USED FOR UNKNOWN INDICATION
     Dosage: UNK
     Route: 048
     Dates: start: 201703, end: 201703
  2. LEMTRADA [Suspect]
     Active Substance: ALEMTUZUMAB
     Indication: MULTIPLE SCLEROSIS
     Dosage: 12 MG, QD
     Route: 041
     Dates: start: 20170320, end: 20170324
  3. CORTISONE ACETATE. [Suspect]
     Active Substance: CORTISONE ACETATE
     Indication: INFUSION RELATED REACTION
     Dosage: UNK
     Route: 048

REACTIONS (8)
  - Weight increased [Unknown]
  - Rash generalised [Recovered/Resolved]
  - Fatigue [Unknown]
  - Trance [Recovered/Resolved]
  - Acne [Not Recovered/Not Resolved]
  - Rehabilitation therapy [Unknown]
  - Hypothyroidism [Unknown]
  - Hypoaesthesia [Unknown]

NARRATIVE: CASE EVENT DATE: 2017
